APPROVED DRUG PRODUCT: CLINDA-DERM
Active Ingredient: CLINDAMYCIN PHOSPHATE
Strength: EQ 1% BASE
Dosage Form/Route: SOLUTION;TOPICAL
Application: A063329 | Product #001 | TE Code: AT
Applicant: PADAGIS US LLC
Approved: Sep 30, 1992 | RLD: No | RS: No | Type: RX